FAERS Safety Report 4411177-6 (Version None)
Quarter: 2004Q2

REPORT INFORMATION
  Report Type: 
  Country: None (occurrence: None)
  Receive Date: 20040630
  Receipt Date: 20040513
  Transmission Date: 20050107
  Serious: No
  Sender: FDA-Public Use
  Company Number: 04P-163-0260715-00

PATIENT
  Age: 76 Year
  Sex: Female
  Weight: 50.8029 kg

DRUGS (9)
  1. HUMIRA [Suspect]
     Indication: RHEUMATOID ARTHRITIS
     Dosage: 40 MG 1 IN 2 WK SUBCUTANEOUS
     Route: 058
     Dates: start: 20040426
  2. METHOTREXATE SODIUM [Concomitant]
  3. HYDROXYCHLOROQUINE PHOSPHATE [Concomitant]
  4. DICLOFENAC SODIUM [Concomitant]
  5. SULFASALAZINE [Concomitant]
  6. HYDROCHLOROTHIAZIDE [Concomitant]
  7. ALENDRONATE SODIUM [Concomitant]
  8. CALCIUM WITH VITAMIN D [Concomitant]
  9. CYANOCOBALAMIN [Concomitant]

REACTIONS (2)
  - ERYTHEMA [None]
  - PARAESTHESIA [None]
